FAERS Safety Report 19809497 (Version 1)
Quarter: 2021Q3

REPORT INFORMATION
  Report Type: Spontaneous
  Country: CL (occurrence: CL)
  Receive Date: 20210908
  Receipt Date: 20210908
  Transmission Date: 20211014
  Serious: Yes (Other)
  Sender: FDA-Public Use
  Company Number: CL-FRESENIUS KABI-FK202109602

PATIENT
  Sex: Male

DRUGS (8)
  1. FENTANYL (MANUFACTURER UNKNOWN) [Suspect]
     Active Substance: FENTANYL
     Indication: ANALGESIC THERAPY
  2. MIDAZOLAM. [Concomitant]
     Active Substance: MIDAZOLAM
     Indication: ANALGESIC THERAPY
  3. DEXMEDETOMIDINE. [Concomitant]
     Active Substance: DEXMEDETOMIDINE
     Indication: SEDATIVE THERAPY
     Route: 064
  4. MIDAZOLAM. [Concomitant]
     Active Substance: MIDAZOLAM
     Indication: SEDATIVE THERAPY
     Route: 064
  5. DEXMEDETOMIDINE. [Concomitant]
     Active Substance: DEXMEDETOMIDINE
     Indication: ANALGESIC THERAPY
  6. FENTANYL (MANUFACTURER UNKNOWN) [Suspect]
     Active Substance: FENTANYL
     Indication: SEDATIVE THERAPY
     Route: 064
  7. PROPOFOL. [Concomitant]
     Active Substance: PROPOFOL
     Indication: SEDATIVE THERAPY
     Route: 064
  8. PROPOFOL. [Concomitant]
     Active Substance: PROPOFOL
     Indication: ANALGESIC THERAPY

REACTIONS (5)
  - Drug withdrawal syndrome neonatal [Unknown]
  - Urinary bladder rupture [Recovered/Resolved]
  - Urinary retention [Recovered/Resolved]
  - Atonic urinary bladder [Recovered/Resolved]
  - Foetal exposure during pregnancy [Recovered/Resolved]
